FAERS Safety Report 12706357 (Version 1)
Quarter: 2016Q3

REPORT INFORMATION
  Report Type: Report from Study
  Country: US (occurrence: US)
  Receive Date: 20160901
  Receipt Date: 20160901
  Transmission Date: 20161109
  Serious: Yes (Other)
  Sender: FDA-Public Use
  Company Number: US-MALLINCKRODT-T201603891

PATIENT
  Age: 54 Year
  Sex: Female
  Weight: 68 kg

DRUGS (12)
  1. NUCYNTA [Concomitant]
     Active Substance: TAPENTADOL HYDROCHLORIDE
  2. POTASSIUM [Concomitant]
     Active Substance: POTASSIUM
  3. CHANTIX [Interacting]
     Active Substance: VARENICLINE TARTRATE
     Indication: SMOKING CESSATION THERAPY
     Dosage: UNKNOWN DOSE/FREQUENCY
     Route: 065
  4. SYNTHROID [Concomitant]
     Active Substance: LEVOTHYROXINE SODIUM
  5. VITAMIN D [Concomitant]
     Active Substance: CHOLECALCIFEROL
  6. NEURONTIN [Concomitant]
     Active Substance: GABAPENTIN
  7. COPAXONE [Concomitant]
     Active Substance: GLATIRAMER ACETATE
  8. FLONASE [Concomitant]
     Active Substance: FLUTICASONE PROPIONATE
  9. ACTIVA [Concomitant]
     Active Substance: DICLOFENAC SODIUM
     Indication: CONSTIPATION
  10. REPOSITORY CORTICOTROPIN INJECTION [Suspect]
     Active Substance: CORTICOTROPIN
     Indication: MULTIPLE SCLEROSIS
     Dosage: 80 UNITS ONCE DAILY X 15 DAYS
     Route: 065
     Dates: start: 201607, end: 201608
  11. AMPYRA [Concomitant]
     Active Substance: DALFAMPRIDINE
  12. TRAMADOL. [Concomitant]
     Active Substance: TRAMADOL

REACTIONS (11)
  - Drug interaction [Unknown]
  - Food craving [Unknown]
  - Irritability [Unknown]
  - Haemorrhage urinary tract [Unknown]
  - Oedema peripheral [Unknown]
  - Constipation [Not Recovered/Not Resolved]
  - Memory impairment [Not Recovered/Not Resolved]
  - Haematochezia [Recovered/Resolved]
  - Blood pressure increased [Unknown]
  - Weight increased [Not Recovered/Not Resolved]
  - Heart rate increased [Unknown]

NARRATIVE: CASE EVENT DATE: 2016
